FAERS Safety Report 4679688-6 (Version None)
Quarter: 2005Q2

REPORT INFORMATION
  Report Type: 
  Country: None (occurrence: None)
  Receive Date: 20050531
  Receipt Date: 20050519
  Transmission Date: 20051028
  Serious: Yes (Other)
  Sender: FDA-Public Use
  Company Number: 2005-04-2151

PATIENT
  Age: 58 Year
  Sex: Female

DRUGS (9)
  1. INTRON A [Suspect]
     Indication: METASTATIC MALIGNANT MELANOMA
     Dosage: SEE IMAGE
     Route: 058
     Dates: start: 20000715, end: 20010401
  2. INTRON A [Suspect]
     Indication: METASTATIC MALIGNANT MELANOMA
     Dosage: SEE IMAGE
     Route: 058
     Dates: start: 20000715, end: 20010501
  3. INTRON A [Suspect]
     Indication: METASTATIC MALIGNANT MELANOMA
     Dosage: SEE IMAGE
     Route: 058
     Dates: start: 20040401, end: 20010501
  4. RADIATION THERAPY [Suspect]
     Indication: METASTATIC MALIGNANT MELANOMA
     Dosage: UNKNOWN X-RAY THERAPY
     Dates: start: 20010401, end: 20010501
  5. RADIATION THERAPY [Suspect]
     Indication: METASTATIC MALIGNANT MELANOMA
     Dosage: UNKNOWN X-RAY THERAPY
     Dates: start: 19991130
  6. VINBLASTINE 12 MG [Concomitant]
  7. CISPLATIN [Concomitant]
  8. DTIC 185 MG [Concomitant]
  9. INTERLEUKI [Concomitant]

REACTIONS (18)
  - ARTHROPATHY [None]
  - AXILLARY VEIN THROMBOSIS [None]
  - CATHETER SEPSIS [None]
  - ESCHERICHIA URINARY TRACT INFECTION [None]
  - FIBROSIS [None]
  - HEPATIC CYST [None]
  - KLEBSIELLA SEPSIS [None]
  - LEUKOPENIA [None]
  - MUSCLE CONTRACTIONS INVOLUNTARY [None]
  - MYALGIA [None]
  - OSTEOARTHRITIS [None]
  - PSEUDOMONAL SEPSIS [None]
  - PYELONEPHRITIS ACUTE [None]
  - RASH MACULO-PAPULAR [None]
  - SEPSIS [None]
  - SIALOADENITIS [None]
  - SPINAL OSTEOARTHRITIS [None]
  - SUBCLAVIAN VEIN THROMBOSIS [None]
